FAERS Safety Report 9592937 (Version 2)
Quarter: 2013Q4

REPORT INFORMATION
  Report Type: Report from Study
  Country: JP (occurrence: JP)
  Receive Date: 20131004
  Receipt Date: 20131129
  Transmission Date: 20140711
  Serious: Yes (Death, Hospitalization)
  Sender: FDA-Public Use
  Company Number: PHHY2013JP110792

PATIENT
  Age: 85 Year
  Sex: Male

DRUGS (10)
  1. EXELON [Suspect]
     Indication: DEMENTIA ALZHEIMER^S TYPE
     Dosage: 4.5 MG, DAILY
     Route: 062
     Dates: start: 20120302, end: 20120323
  2. PLETAAL [Concomitant]
     Indication: CEREBRAL INFARCTION
     Dosage: 200 MG, UNK
     Route: 048
     Dates: end: 20120327
  3. PIMOBENDAN [Concomitant]
     Indication: CARDIAC FAILURE
     Dosage: 5 MG, UNK
     Route: 048
  4. BENET [Concomitant]
     Indication: OSTEOPOROSIS
     Dosage: UNK UKN, UNK
     Route: 048
     Dates: end: 20120327
  5. AROPHALM [Concomitant]
     Indication: INSOMNIA
     Dosage: 1 MG, UNK
     Route: 048
     Dates: end: 20120327
  6. AIDEITO [Concomitant]
     Indication: HYPERURICAEMIA
     Dosage: 100 MG, UNK
     Route: 048
     Dates: end: 20120327
  7. PIROLACTON [Concomitant]
     Indication: CARDIAC FAILURE
     Dosage: 25 MG, UNK
     Route: 048
  8. BLOPRESS [Concomitant]
     Indication: HYPERTENSION
     Dosage: 4 MG, UNK
     Route: 048
     Dates: end: 20120315
  9. IMIDAPRIL HYDROCHLORIDE [Concomitant]
     Indication: HYPERTENSION
     Dosage: 1.3 MG, UNK
     Route: 048
     Dates: start: 20120316, end: 20120327
  10. DAITALIC [Concomitant]
     Indication: CARDIAC FAILURE
     Dosage: 60 MG, UNK
     Route: 048

REACTIONS (3)
  - Cardiac failure [Fatal]
  - Pleural effusion [Unknown]
  - Decreased appetite [Not Recovered/Not Resolved]
